FAERS Safety Report 17538944 (Version 1)
Quarter: 2020Q1

REPORT INFORMATION
  Report Type: Spontaneous
  Country: US (occurrence: US)
  Receive Date: 20200313
  Receipt Date: 20200313
  Transmission Date: 20200409
  Serious: No
  Sender: FDA-Public Use
  Company Number: US-JNJFOC-20200315572

PATIENT
  Age: 59 Year
  Sex: Female
  Weight: 59.02 kg

DRUGS (1)
  1. TREMFYA [Suspect]
     Active Substance: GUSELKUMAB
     Indication: PUSTULAR PSORIASIS
     Route: 058
     Dates: start: 2018

REACTIONS (4)
  - Off label use [Unknown]
  - Product use issue [Unknown]
  - Product storage error [Unknown]
  - Product dose omission [Unknown]

NARRATIVE: CASE EVENT DATE: 2018
